FAERS Safety Report 6109297-3 (Version None)
Quarter: 2009Q1

REPORT INFORMATION
  Report Type: 
  Country: None (occurrence: None)
  Receive Date: 20090310
  Receipt Date: 20090227
  Transmission Date: 20090719
  Serious: Yes (Hospitalization)
  Sender: FDA-Public Use
  Company Number: DE-NOVOPROD-284730

PATIENT
  Age: 83 Year
  Sex: Female

DRUGS (7)
  1. REPAGLINIDE [Suspect]
     Indication: TYPE 2 DIABETES MELLITUS
     Dosage: .5 MG, BID
     Route: 048
     Dates: end: 20080929
  2. CALCILAC KT [Suspect]
     Indication: DRUG USE FOR UNKNOWN INDICATION
     Dosage: 500 MG, QD
     Route: 048
     Dates: end: 20080929
  3. METHIZOL [Concomitant]
     Dosage: 2.5 MG, QD
     Route: 048
     Dates: end: 20080801
  4. ASPIRIN [Interacting]
     Dosage: 100 MG, QD
     Route: 048
  5. EXFORGE                            /01634301/ [Interacting]
     Dosage: 5 MG, QD
     Route: 048
  6. CARBAMAZEPINE [Interacting]
     Dosage: 200 MG, QD
     Route: 048
  7. TORSEMIDE [Interacting]
     Dosage: 10 MG, UNK

REACTIONS (3)
  - DEHYDRATION [None]
  - DIARRHOEA [None]
  - DRUG INTOLERANCE [None]
